FAERS Safety Report 26175495 (Version 1)
Quarter: 2025Q4

REPORT INFORMATION
  Report Type: Spontaneous
  Country: CA (occurrence: CA)
  Receive Date: 20251218
  Receipt Date: 20251218
  Transmission Date: 20260118
  Serious: Yes (Hospitalization)
  Sender: OTSUKA
  Company Number: CA-MMM-Otsuka-3WF98B5S

PATIENT
  Age: 7 Year
  Sex: Male
  Weight: 56 kg

DRUGS (3)
  1. ARIPIPRAZOLE [Suspect]
     Active Substance: ARIPIPRAZOLE
     Indication: Autism spectrum disorder
     Dosage: 1.5 MG, QD (ONCE EVERY DAY)
     Route: 061
  2. RUPATADINE [Concomitant]
     Active Substance: RUPATADINE
     Indication: Product used for unknown indication
     Dosage: UNK
     Route: 065
  3. ALBUTEROL [Concomitant]
     Active Substance: ALBUTEROL
     Indication: Product used for unknown indication
     Dosage: UNK (LIQUID INTRAVENOUS)

REACTIONS (4)
  - Tourette^s disorder [Recovered/Resolved]
  - Tic [Recovered/Resolved]
  - Muscle spasms [Recovered/Resolved]
  - Dystonia [Recovered/Resolved]
